FAERS Safety Report 8340659-X (Version None)
Quarter: 2012Q2

REPORT INFORMATION
  Report Type: 
  Country: None (occurrence: None)
  Receive Date: 20120507
  Receipt Date: 20120426
  Transmission Date: 20120825
  Serious: Yes (Other)
  Sender: FDA-Public Use
  Company Number: US-ASTRAZENECA-2012SE27686

PATIENT
  Age: 22050 Day
  Sex: Female

DRUGS (13)
  1. OMEPRAZOLE [Suspect]
     Route: 048
  2. PREVACID [Concomitant]
     Route: 048
  3. TENORETIC 100 [Suspect]
     Dosage: 50+25 MG ONE TABLET DAILY
     Route: 048
     Dates: start: 20090101
  4. CRESTOR [Suspect]
     Route: 048
     Dates: start: 20080101
  5. ZETIA [Concomitant]
     Route: 048
  6. BENICAR HCT [Concomitant]
     Dosage: 20/12.5MG ONCE DAILY
     Route: 048
  7. ATENOLOL [Suspect]
     Route: 048
     Dates: start: 20080101
  8. ACTOS [Concomitant]
     Route: 048
  9. JANUVIA [Concomitant]
     Route: 048
  10. LISINOPRIL [Suspect]
     Route: 048
     Dates: start: 20080101
  11. RANITIDINE [Concomitant]
     Route: 048
  12. ASPIRIN [Concomitant]
     Route: 048
  13. GLIPIZIDE [Concomitant]
     Route: 048

REACTIONS (13)
  - RENAL FAILURE [None]
  - DRUG HYPERSENSITIVITY [None]
  - DIABETIC NEPHROPATHY [None]
  - NEUROPATHY PERIPHERAL [None]
  - GASTROOESOPHAGEAL REFLUX DISEASE [None]
  - VITAMIN D DEFICIENCY [None]
  - ESSENTIAL HYPERTENSION [None]
  - LEUKOCYTOSIS [None]
  - LIVER FUNCTION TEST ABNORMAL [None]
  - RESTLESS LEGS SYNDROME [None]
  - FATIGUE [None]
  - IRON DEFICIENCY ANAEMIA [None]
  - HYPERLIPIDAEMIA [None]
